FAERS Safety Report 10593355 (Version 1)
Quarter: 2014Q4

REPORT INFORMATION
  Report Type: Spontaneous
  Country: US (occurrence: None)
  Receive Date: 20141118
  Receipt Date: 20141118
  Transmission Date: 20150529
  Serious: Yes (Disabling, Other)
  Sender: FDA-Public Use
  Company Number: None

PATIENT
  Age: 76 Year
  Sex: Female
  Weight: 56.7 kg

DRUGS (7)
  1. ZOLEDRONIC ACID [Suspect]
     Active Substance: ZOLEDRONIC ACID
     Indication: BONE DENSITY ABNORMAL
     Route: 041
  2. IBUPROFEN. [Concomitant]
     Active Substance: IBUPROFEN
  3. ALEVE [Concomitant]
     Active Substance: NAPROXEN SODIUM
  4. WALGREENS PAIN RELIEVER [Concomitant]
     Active Substance: ACETAMINOPHEN
  5. ZOLEDRONIC ACID [Concomitant]
     Active Substance: ZOLEDRONIC ACID
  6. CALCIUM WITH VITAMIN D [Concomitant]
     Active Substance: CALCIUM\VITAMIN D
  7. BABY ASPIRIN [Concomitant]
     Active Substance: ASPIRIN

REACTIONS (7)
  - Groin pain [None]
  - Chills [None]
  - Pain in extremity [None]
  - Bone pain [None]
  - Myalgia [None]
  - Constipation [None]
  - Arthralgia [None]

NARRATIVE: CASE EVENT DATE: 201408
